FAERS Safety Report 9162509 (Version 2)
Quarter: 2013Q1

REPORT INFORMATION
  Report Type: Spontaneous
  Country: US (occurrence: None)
  Receive Date: 20130219
  Receipt Date: 20130226
  Transmission Date: 20140127
  Serious: Yes (Hospitalization)
  Sender: FDA-Public Use
  Company Number: 2013PROUSA02549

PATIENT
  Age: 85 Year
  Sex: Male
  Weight: 68 kg

DRUGS (12)
  1. PROVENGE (SIPULEUCEL-T) SUSPENSION [Suspect]
     Indication: PROSTATE CANCER METASTATIC
     Route: 042
     Dates: start: 20121210, end: 20121210
  2. TAMSULOSIN (TAMSULOSIN) [Concomitant]
  3. AMLODIPINE (AMLODIPINE) [Concomitant]
  4. ATORVASTATIN (ATORVASTATIN CALCIUM) [Concomitant]
  5. TUMS (CALCIUM CARBONATE, MAGNESIUM CARBONATE, MAGNESIUM TRISCILICATE) [Concomitant]
  6. COLACE (DOCUSATE SODIUM) [Concomitant]
  7. GARLIC TABLETS [Concomitant]
  8. ASPIRIN (ACETYLSALICYLIC ACID) [Concomitant]
  9. PLAVIX (CLOPIDOGREL BISULFATE) [Concomitant]
  10. XGEVA (DENOSUMAB) [Concomitant]
  11. DEGARELIX (DEGARELIX) [Concomitant]
  12. CENTRUM SILVER [Concomitant]

REACTIONS (4)
  - Cerebral infarction [None]
  - Fall [None]
  - Blood pressure systolic increased [None]
  - Cerebrovascular accident [None]
